FAERS Safety Report 6501891-0 (Version None)
Quarter: 2009Q4

REPORT INFORMATION
  Report Type: 
  Country: None (occurrence: None)
  Receive Date: 20091216
  Receipt Date: 20091204
  Transmission Date: 20100525
  Serious: Yes (Other)
  Sender: FDA-Public Use
  Company Number: PHHY2009JP42114

PATIENT
  Age: 50 Year
  Sex: Female

DRUGS (4)
  1. TEGRETOL [Suspect]
     Indication: EPILEPSY
     Dosage: UNK
  2. TEGRETOL [Interacting]
     Indication: NEUROPATHY PERIPHERAL
  3. ISONIAZID [Interacting]
     Dosage: 300 MG/DAY
  4. CYCLOPHOSPHAMIDE [Concomitant]
     Indication: MONONEURITIS
     Dosage: 750 MG

REACTIONS (7)
  - DEPRESSED LEVEL OF CONSCIOUSNESS [None]
  - DRUG INTERACTION [None]
  - DRUG LEVEL INCREASED [None]
  - DRUG TOXICITY [None]
  - LETHARGY [None]
  - LIVER DISORDER [None]
  - LIVER FUNCTION TEST ABNORMAL [None]
